FAERS Safety Report 5971237-5 (Version None)
Quarter: 2008Q4

REPORT INFORMATION
  Report Type: 
  Country: None (occurrence: None)
  Receive Date: 20081128
  Receipt Date: 20081121
  Transmission Date: 20090506
  Serious: Yes (Hospitalization, Other)
  Sender: FDA-Public Use
  Company Number: AU-PFIZER INC-2008093678

PATIENT
  Sex: Female
  Weight: 60 kg

DRUGS (5)
  1. LIPITOR [Suspect]
     Indication: DYSLIPIDAEMIA
     Route: 048
     Dates: start: 20080922, end: 20081103
  2. LIPITOR [Suspect]
     Indication: TRANSIENT ISCHAEMIC ATTACK
  3. NORVASC [Suspect]
     Indication: HYPERTENSION
  4. ASPIRIN [Concomitant]
  5. MICARDIS HCT [Concomitant]

REACTIONS (3)
  - HEPATITIS [None]
  - LETHARGY [None]
  - TRANSIENT ISCHAEMIC ATTACK [None]
